FAERS Safety Report 20436461 (Version 1)
Quarter: 2022Q1

REPORT INFORMATION
  Report Type: Report from Study
  Country: US (occurrence: US)
  Receive Date: 20220207
  Receipt Date: 20220207
  Transmission Date: 20220423
  Serious: Yes (Other)
  Sender: FDA-Public Use
  Company Number: US-CELGENE-USA-20220200283

PATIENT
  Age: 35 Year
  Sex: Female

DRUGS (1)
  1. ZEPOSIA [Suspect]
     Active Substance: OZANIMOD HYDROCHLORIDE
     Indication: Multiple sclerosis
     Dosage: .92 MILLIGRAM
     Route: 048
     Dates: start: 20181101

REACTIONS (6)
  - Nephrolithiasis [Unknown]
  - Neuralgia [Unknown]
  - Anxiety [Unknown]
  - Depression [Unknown]
  - Multiple sclerosis [Unknown]
  - Hypertension [Unknown]

NARRATIVE: CASE EVENT DATE: 20220131
